FAERS Safety Report 5543142-X (Version None)
Quarter: 2007Q4

REPORT INFORMATION
  Report Type: 
  Country: None (occurrence: None)
  Receive Date: 20071206
  Receipt Date: 20071126
  Transmission Date: 20080405
  Serious: Yes (Hospitalization)
  Sender: FDA-Public Use
  Company Number: 2007BI025280

PATIENT
  Age: 21 Year
  Sex: Female

DRUGS (1)
  1. AVONEX [Suspect]
     Indication: MULTIPLE SCLEROSIS
     Dosage: 30 UG; QW; IM
     Route: 030
     Dates: start: 20041018, end: 20061220

REACTIONS (4)
  - CONDITION AGGRAVATED [None]
  - DRUG EXPOSURE BEFORE PREGNANCY [None]
  - MULTIPLE SCLEROSIS [None]
  - PREMATURE LABOUR [None]
